FAERS Safety Report 9297558 (Version 3)
Quarter: 2013Q3

REPORT INFORMATION
  Report Type: Report from Study
  Country: CA (occurrence: CA)
  Receive Date: 20130520
  Receipt Date: 20130828
  Transmission Date: 20140515
  Serious: Yes (Other)
  Sender: FDA-Public Use
  Company Number: CA-JNJFOC-20130508172

PATIENT
  Age: 54 Year
  Sex: Male
  Weight: 70 kg

DRUGS (6)
  1. REMICADE [Suspect]
     Indication: CROHN^S DISEASE
     Dosage: TOTAL INFLIXIMAB TREATMENT 77
     Route: 042
     Dates: start: 20130508
  2. REMICADE [Suspect]
     Indication: CROHN^S DISEASE
     Route: 042
     Dates: start: 200504
  3. SOLUCORTEF [Concomitant]
     Indication: PREMEDICATION
     Dosage: ^Q 5 W^
     Route: 042
  4. BENADRYL [Concomitant]
     Indication: PREMEDICATION
     Dosage: ^QSW^
     Route: 042
  5. MORPHINE [Concomitant]
     Route: 048
  6. GRAVOL [Concomitant]
     Indication: PREMEDICATION
     Route: 042

REACTIONS (10)
  - Drug dependence [Unknown]
  - Drug withdrawal syndrome [Unknown]
  - Chest pain [Unknown]
  - Hyperhidrosis [Unknown]
  - Chest discomfort [Recovered/Resolved]
  - Feeling cold [Recovered/Resolved]
  - Infusion related reaction [Recovered/Resolved]
  - Rash [Unknown]
  - Pyrexia [Unknown]
  - Dizziness [Recovered/Resolved]
